FAERS Safety Report 18604359 (Version 5)
Quarter: 2021Q4

REPORT INFORMATION
  Report Type: Spontaneous
  Country: FR (occurrence: FR)
  Receive Date: 20201211
  Receipt Date: 20211018
  Transmission Date: 20220303
  Serious: Yes (Death, Hospitalization, Other)
  Sender: FDA-Public Use
  Company Number: FR-009507513-2011FRA012669

PATIENT
  Age: 75 Year
  Sex: Male

DRUGS (45)
  1. IMIPENEM AND CILASTATIN [Suspect]
     Active Substance: CILASTATIN SODIUM\IMIPENEM
     Indication: Enterobacter infection
     Dosage: UNK
     Route: 065
     Dates: start: 2018
  2. IMIPENEM AND CILASTATIN [Suspect]
     Active Substance: CILASTATIN SODIUM\IMIPENEM
     Indication: Staphylococcal infection
  3. LEVOFLOXACIN [Suspect]
     Active Substance: LEVOFLOXACIN
     Indication: Staphylococcal infection
     Dosage: UNK
     Route: 065
     Dates: start: 201803, end: 201803
  4. LEVOFLOXACIN [Suspect]
     Active Substance: LEVOFLOXACIN
     Indication: Enterobacter infection
  5. LEVOFLOXACIN [Suspect]
     Active Substance: LEVOFLOXACIN
     Indication: Bacteraemia
  6. LEVOFLOXACIN [Suspect]
     Active Substance: LEVOFLOXACIN
     Indication: Pneumonia
  7. LINEZOLID [Suspect]
     Active Substance: LINEZOLID
     Indication: Staphylococcal infection
     Dosage: UNK
     Route: 065
     Dates: start: 201802, end: 201802
  8. LINEZOLID [Suspect]
     Active Substance: LINEZOLID
     Indication: Enterobacter infection
     Dosage: UNK
     Route: 065
     Dates: start: 201804, end: 201804
  9. LINEZOLID [Suspect]
     Active Substance: LINEZOLID
     Indication: Bacteraemia
     Dosage: UNK
     Route: 065
     Dates: start: 201805, end: 201805
  10. LINEZOLID [Suspect]
     Active Substance: LINEZOLID
     Indication: Pneumonia
  11. MEROPENEM [Suspect]
     Active Substance: MEROPENEM
     Indication: Staphylococcal infection
     Dosage: UNK
     Route: 065
     Dates: start: 201803, end: 201803
  12. MEROPENEM [Suspect]
     Active Substance: MEROPENEM
     Indication: Enterobacter infection
     Dosage: UNK
     Dates: start: 201803, end: 201804
  13. MEROPENEM [Suspect]
     Active Substance: MEROPENEM
     Indication: Bacteraemia
     Dosage: UNK
     Route: 065
     Dates: start: 201804, end: 201805
  14. MEROPENEM [Suspect]
     Active Substance: MEROPENEM
     Indication: Pneumonia
  15. AMIKACIN [Suspect]
     Active Substance: AMIKACIN
     Indication: Enterobacter infection
     Dosage: UNK
     Route: 065
     Dates: start: 201802, end: 201802
  16. AMIKACIN [Suspect]
     Active Substance: AMIKACIN
     Indication: Staphylococcal infection
     Dosage: UNK
     Route: 065
     Dates: start: 201803, end: 201803
  17. AMIKACIN [Suspect]
     Active Substance: AMIKACIN
     Indication: Pneumonia
     Dosage: UNK
     Route: 065
     Dates: start: 201804, end: 201804
  18. AMIKACIN [Suspect]
     Active Substance: AMIKACIN
     Indication: Bacteraemia
  19. AVIBACTAM SODIUM\CEFTAZIDIME [Suspect]
     Active Substance: AVIBACTAM SODIUM\CEFTAZIDIME
     Indication: Staphylococcal infection
     Dosage: UNK
     Route: 065
     Dates: start: 201805, end: 201805
  20. AVIBACTAM SODIUM\CEFTAZIDIME [Suspect]
     Active Substance: AVIBACTAM SODIUM\CEFTAZIDIME
     Indication: Enterobacter infection
  21. CEFTAROLINE [Suspect]
     Active Substance: CEFTAROLINE
     Indication: Enterobacter infection
     Dosage: UNK
     Route: 065
     Dates: start: 201803, end: 201803
  22. CEFTAROLINE [Suspect]
     Active Substance: CEFTAROLINE
     Indication: Staphylococcal infection
  23. CEFTAROLINE [Suspect]
     Active Substance: CEFTAROLINE
     Indication: Pneumonia
  24. CEFTAROLINE [Suspect]
     Active Substance: CEFTAROLINE
     Indication: Bacteraemia
  25. COTRIMOXAZOLE [Suspect]
     Active Substance: SULFAMETHOXAZOLE\TRIMETHOPRIM
     Indication: Staphylococcal infection
     Dosage: UNK
     Route: 065
     Dates: start: 201803, end: 201804
  26. COTRIMOXAZOLE [Suspect]
     Active Substance: SULFAMETHOXAZOLE\TRIMETHOPRIM
     Indication: Enterobacter infection
  27. COTRIMOXAZOLE [Suspect]
     Active Substance: SULFAMETHOXAZOLE\TRIMETHOPRIM
     Indication: Bacteraemia
  28. COTRIMOXAZOLE [Suspect]
     Active Substance: SULFAMETHOXAZOLE\TRIMETHOPRIM
     Indication: Pneumonia
  29. DAPTOMYCIN [Suspect]
     Active Substance: DAPTOMYCIN
     Indication: Staphylococcal infection
     Dosage: UNK
     Route: 065
     Dates: start: 201803, end: 201803
  30. DAPTOMYCIN [Suspect]
     Active Substance: DAPTOMYCIN
     Indication: Enterobacter infection
     Dosage: UNK
     Route: 065
     Dates: start: 201804, end: 201804
  31. DAPTOMYCIN [Suspect]
     Active Substance: DAPTOMYCIN
     Indication: Pneumonia
  32. DAPTOMYCIN [Suspect]
     Active Substance: DAPTOMYCIN
     Indication: Bacteraemia
  33. ERYTHROMYCIN [Suspect]
     Active Substance: ERYTHROMYCIN
     Indication: Staphylococcal infection
     Dosage: UNK
     Route: 065
     Dates: start: 201802, end: 201802
  34. ERYTHROMYCIN [Suspect]
     Active Substance: ERYTHROMYCIN
     Indication: Enterobacter infection
     Dosage: UNK
     Route: 065
     Dates: start: 201805, end: 201805
  35. ERYTHROMYCIN [Suspect]
     Active Substance: ERYTHROMYCIN
     Indication: Bacteraemia
  36. IMIPENEM [Suspect]
     Active Substance: IMIPENEM
     Indication: Pneumonia
     Dosage: UNK
     Route: 065
     Dates: start: 201802, end: 201802
  37. IMIPENEM [Suspect]
     Active Substance: IMIPENEM
     Indication: Bacteraemia
  38. PIPERACILLIN SODIUM\TAZOBACTAM SODIUM [Suspect]
     Active Substance: PIPERACILLIN SODIUM\TAZOBACTAM SODIUM
     Indication: Enterobacter infection
     Dosage: UNK
     Route: 065
     Dates: start: 201802, end: 201802
  39. PIPERACILLIN SODIUM\TAZOBACTAM SODIUM [Suspect]
     Active Substance: PIPERACILLIN SODIUM\TAZOBACTAM SODIUM
     Indication: Staphylococcal infection
  40. PIPERACILLIN SODIUM\TAZOBACTAM SODIUM [Suspect]
     Active Substance: PIPERACILLIN SODIUM\TAZOBACTAM SODIUM
     Indication: Bacteraemia
  41. PIPERACILLIN SODIUM\TAZOBACTAM SODIUM [Suspect]
     Active Substance: PIPERACILLIN SODIUM\TAZOBACTAM SODIUM
     Indication: Pneumonia
  42. VANCOMYCIN [Suspect]
     Active Substance: VANCOMYCIN
     Indication: Staphylococcal infection
     Dosage: UNK, IN MARCH
     Route: 065
     Dates: start: 201803, end: 201803
  43. VANCOMYCIN [Suspect]
     Active Substance: VANCOMYCIN
     Indication: Enterobacter infection
     Dosage: UNK
     Route: 065
     Dates: start: 201801, end: 201802
  44. VANCOMYCIN [Suspect]
     Active Substance: VANCOMYCIN
     Indication: Bacteraemia
  45. VANCOMYCIN [Suspect]
     Active Substance: VANCOMYCIN
     Indication: Pneumonia

REACTIONS (3)
  - Treatment failure [Fatal]
  - Pathogen resistance [Unknown]
  - Off label use [Recovered/Resolved]

NARRATIVE: CASE EVENT DATE: 20180101
